FAERS Safety Report 5268517-8 (Version None)
Quarter: 2007Q1

REPORT INFORMATION
  Report Type: 
  Country: None (occurrence: None)
  Receive Date: 20061213
  Receipt Date: 20041007
  Transmission Date: 20070707
  Serious: Yes (Other)
  Sender: FDA-Public Use
  Company Number: 2004UW18027

PATIENT
  Age: 63 Year
  Sex: Female
  Weight: 68.0396 kg

DRUGS (6)
  1. IRESSA [Suspect]
     Indication: LUNG ADENOCARCINOMA
     Dosage: 500 MG DAILY PO
     Route: 048
     Dates: start: 20020101, end: 20040101
  2. IRESSA [Suspect]
     Indication: METASTASES TO LIVER
     Dosage: 500 MG DAILY PO
     Route: 048
     Dates: start: 20020101, end: 20040101
  3. IRESSA [Suspect]
     Indication: LUNG ADENOCARCINOMA
     Dosage: 250 MG DAILY PO
     Route: 048
     Dates: start: 20040101
  4. IRESSA [Suspect]
     Indication: METASTASES TO LIVER
     Dosage: 250 MG DAILY PO
     Route: 048
     Dates: start: 20040101
  5. ZOMETA [Concomitant]
  6. VICODIN [Concomitant]

REACTIONS (4)
  - CENTRAL PONTINE MYELINOLYSIS [None]
  - COORDINATION ABNORMAL [None]
  - DYSARTHRIA [None]
  - NUCLEAR MAGNETIC RESONANCE IMAGING BRAIN ABNORMAL [None]
